FAERS Safety Report 7508587-7 (Version None)
Quarter: 2011Q2

REPORT INFORMATION
  Report Type: 
  Country: None (occurrence: None)
  Receive Date: 20110527
  Receipt Date: 20100806
  Transmission Date: 20111010
  Serious: No
  Sender: FDA-Public Use
  Company Number: A0875993A

PATIENT
  Age: 44 Year
  Sex: Female
  Weight: 77.2 kg

DRUGS (8)
  1. FLOLAN [Suspect]
     Indication: PULMONARY ARTERIAL HYPERTENSION
     Dosage: 37NGKM UNKNOWN
     Route: 042
     Dates: start: 20080926
  2. SPIRONOLACTONE [Concomitant]
     Dosage: 25MG PER DAY
     Route: 048
  3. IMODIUM [Concomitant]
     Dosage: 2MG AS REQUIRED
     Route: 048
  4. LASIX [Concomitant]
     Dosage: 40MG IN THE MORNING
     Route: 048
  5. COUMADIN [Concomitant]
     Route: 048
  6. ZOCOR [Concomitant]
     Dosage: 40MG PER DAY
     Route: 048
  7. REVATIO [Concomitant]
     Dosage: 20MG THREE TIMES PER DAY
     Route: 048
  8. ALBUTEROL SULFATE AUTOHALER [Concomitant]
     Dosage: 90MCG AS REQUIRED
     Route: 055

REACTIONS (7)
  - EATING DISORDER [None]
  - FLUSHING [None]
  - RASH [None]
  - SENSITIVITY OF TEETH [None]
  - PAIN IN EXTREMITY [None]
  - DIARRHOEA [None]
  - NAUSEA [None]
